FAERS Safety Report 4667444-4 (Version None)
Quarter: 2005Q2

REPORT INFORMATION
  Report Type: 
  Country: None (occurrence: None)
  Receive Date: 20050519
  Receipt Date: 20050519
  Transmission Date: 20051028
  Serious: Yes (Hospitalization)
  Sender: FDA-Public Use
  Company Number: None

PATIENT
  Age: 64 Year
  Sex: Male
  Weight: 63.5 kg

DRUGS (2)
  1. TEQUIN [Suspect]
  2. FINASTERIDE [Concomitant]

REACTIONS (2)
  - DIZZINESS [None]
  - HYPOGLYCAEMIA [None]
